FAERS Safety Report 19393864 (Version 1)
Quarter: 2021Q2

REPORT INFORMATION
  Report Type: Spontaneous
  Country: US (occurrence: US)
  Receive Date: 20210608
  Receipt Date: 20210608
  Transmission Date: 20210717
  Serious: Yes (Other)
  Sender: FDA-Public Use
  Company Number: None

PATIENT
  Age: 53 Year
  Sex: Female
  Weight: 90.26 kg

DRUGS (1)
  1. GENERIC LORAZEPAM 2MG [Suspect]
     Active Substance: LORAZEPAM
     Indication: SEIZURE
     Route: 048
     Dates: start: 20210223, end: 20210228

REACTIONS (5)
  - Product measured potency issue [None]
  - Palpitations [None]
  - Product substitution issue [None]
  - Panic attack [None]
  - Tremor [None]

NARRATIVE: CASE EVENT DATE: 20210228
